FAERS Safety Report 5869466-4 (Version None)
Quarter: 2008Q3

REPORT INFORMATION
  Report Type: 
  Country: None (occurrence: None)
  Receive Date: 20080828
  Receipt Date: 20080718
  Transmission Date: 20090109
  Serious: Yes (Death, Life-Threatening, Disabling)
  Sender: FDA-Public Use
  Company Number: 13559

PATIENT
  Age: 79 Year
  Sex: Female

DRUGS (16)
  1. CLOFARABINE (CLOFARABINE) [Suspect]
     Indication: ACUTE MYELOID LEUKAEMIA
     Dosage: 40 MG, QDX5, INTRAVENOUS
     Route: 040
     Dates: start: 20050221, end: 20050225
  2. METOCLOPRAMIDE [Concomitant]
  3. ALLOPURINOL [Concomitant]
  4. HYPROMELLOSE (HYPROMELLOSE) [Concomitant]
  5. ACYCLOVIR [Concomitant]
  6. SULFAMETHOXAZOLE AND TRIMETHOPRIM [Concomitant]
  7. PEPTAC (SODIUM BICARBONATE, CALCIUM CARBONATE, SODIUM ALGINATE) [Concomitant]
  8. ONDANZETRON [Concomitant]
  9. OMEPRAZOLE [Concomitant]
  10. NULYTELY [Concomitant]
  11. FORTISIPS [Concomitant]
  12. DOCUSATE SODIUM (DOCUSATE SODIUM) [Concomitant]
  13. SODIUM DOCUSATE [Concomitant]
  14. LOPIDINE (APRACLONIDINE) [Concomitant]
  15. ACETAMINOPHEN [Concomitant]
  16. PARACETAMOL 9PARACETAMOL) [Concomitant]

REACTIONS (11)
  - CONFUSIONAL STATE [None]
  - DEHYDRATION [None]
  - DIARRHOEA [None]
  - FALL [None]
  - HAEMORRHAGE INTRACRANIAL [None]
  - HYPOTENSION [None]
  - LETHARGY [None]
  - SEPSIS [None]
  - THROMBOCYTOPENIA [None]
  - UNRESPONSIVE TO STIMULI [None]
  - URINE OUTPUT DECREASED [None]
